FAERS Safety Report 26047673 (Version 1)
Quarter: 2025Q4

REPORT INFORMATION
  Report Type: Spontaneous
  Country: US (occurrence: None)
  Receive Date: 20251114
  Receipt Date: 20251114
  Transmission Date: 20260117
  Serious: Yes (Hospitalization)
  Sender: FDA-CTU
  Company Number: None

PATIENT
  Sex: Female

DRUGS (13)
  1. IBRANCE [Suspect]
     Active Substance: PALBOCICLIB
     Dosage: FREQUENCY : DAILY;?
     Route: 048
     Dates: start: 20200103
  2. ACETAMINOPHEN\HYDROCODONE [Concomitant]
     Active Substance: ACETAMINOPHEN\HYDROCODONE
  3. SIMVASTATIN [Concomitant]
     Active Substance: SIMVASTATIN
  4. PROLIA [Concomitant]
     Active Substance: DENOSUMAB
  5. AMLODIPINE BESYLATE [Concomitant]
     Active Substance: AMLODIPINE BESYLATE
  6. LISINOPRIL [Concomitant]
     Active Substance: LISINOPRIL
  7. METOPROLOL [Concomitant]
     Active Substance: METOPROLOL
  8. TUMS CHEWY BITES BERRY [Concomitant]
  9. PRESERVISION AR EDS 2 + ML TIVIT [Concomitant]
  10. CLARITIN [Concomitant]
     Active Substance: LORATADINE
  11. VITAMIN D [Concomitant]
     Active Substance: VITAMIN D NOS
  12. ANASTROZOLE [Concomitant]
     Active Substance: ANASTROZOLE
  13. ASMANEX HFA [Concomitant]
     Active Substance: MOMETASONE FUROATE

REACTIONS (1)
  - Hospitalisation [None]
